FAERS Safety Report 5209363-0 (Version None)
Quarter: 2006Q4

REPORT INFORMATION
  Report Type: 
  Country: None (occurrence: None)
  Receive Date: 20061101
  Receipt Date: 20060913
  Transmission Date: 20070319
  Serious: No
  Sender: FDA-Public Use
  Company Number: SPV1-2006-00618

PATIENT
  Age: 46 Year
  Sex: Male
  Weight: 92 kg

DRUGS (14)
  1. FOSRENOL [Suspect]
     Indication: HYPERPHOSPHATAEMIA
     Dosage: 2250 MG, DAILY, ORAL
     Route: 048
     Dates: start: 20060315, end: 20060419
  2. ANTI-PHOSPHAT (ALUMINIUM HYDROXIDE) [Concomitant]
  3. FOLIMET (FOLIC ACID) [Concomitant]
  4. MIMPARA (CINACALCET) [Concomitant]
  5. PANTOPRAZOLE SODIUM [Concomitant]
  6. PLAVIX [Concomitant]
  7. SEDACORON (AMIODARONE HYDROCHLORIDE) [Concomitant]
  8. ATORVASTATIN CALCIUM [Concomitant]
  9. ACETYLSALICYLIC ACID SRT [Concomitant]
  10. CEVITOL (ASCORBIC ACID) [Concomitant]
  11. MULTIVIT B (THIAMINE HYDROCHLORIDE, RIBOFLAVIN, PYRIDOXINE HYDROCHLORI [Concomitant]
  12. ZEMPLAR [Concomitant]
  13. ARANESP [Concomitant]
  14. FRAGMIN [Concomitant]

REACTIONS (2)
  - ABDOMINAL DISTENSION [None]
  - GASTROINTESTINAL DISORDER [None]
